FAERS Safety Report 18728364 (Version 1)
Quarter: 2021Q1

REPORT INFORMATION
  Report Type: Spontaneous
  Country: CA (occurrence: CA)
  Receive Date: 20210111
  Receipt Date: 20210111
  Transmission Date: 20210419
  Serious: Yes (Other)
  Sender: FDA-Public Use
  Company Number: CA-JNJFOC-20210112797

PATIENT
  Age: 61 Year
  Sex: Male

DRUGS (10)
  1. ACETAMINOPHEN. [Concomitant]
     Active Substance: ACETAMINOPHEN
  2. REMICADE [Suspect]
     Active Substance: INFLIXIMAB
     Indication: COLITIS ULCERATIVE
     Route: 042
  3. DIAMICRON [Concomitant]
     Active Substance: GLICLAZIDE
     Route: 065
  4. MEZAVANT [Concomitant]
     Active Substance: MESALAMINE
     Route: 065
  5. PREDNISONE. [Concomitant]
     Active Substance: PREDNISONE
  6. ACETAMINOPHEN. [Concomitant]
     Active Substance: ACETAMINOPHEN
     Indication: PREMEDICATION
     Route: 048
  7. FLAGYL [Concomitant]
     Active Substance: METRONIDAZOLE\METRONIDAZOLE HYDROCHLORIDE
     Route: 048
  8. OXAZEPAM. [Concomitant]
     Active Substance: OXAZEPAM
     Route: 065
  9. AMLODIPINE [Concomitant]
     Active Substance: AMLODIPINE BESYLATE
     Route: 042
  10. JARDIANCE [Concomitant]
     Active Substance: EMPAGLIFLOZIN

REACTIONS (4)
  - Blood pressure fluctuation [Unknown]
  - Off label use [Unknown]
  - Condition aggravated [Unknown]
  - Clostridium difficile infection [Unknown]
